FAERS Safety Report 6491609-2 (Version None)
Quarter: 2009Q4

REPORT INFORMATION
  Report Type: 
  Country: None (occurrence: None)
  Receive Date: 20091201
  Receipt Date: 20091118
  Transmission Date: 20100525
  Serious: Yes (Hospitalization)
  Sender: FDA-Public Use
  Company Number: 2009020847

PATIENT
  Sex: Female
  Weight: 52.1637 kg

DRUGS (7)
  1. VIVAGLOBIN [Suspect]
     Dosage: (50 ML, 50 ML WEEKLY SUBCUTANEOUS)
     Route: 058
     Dates: start: 20090916
  2. ADVAIR HFA [Concomitant]
  3. ALBUTEROL [Concomitant]
  4. FLONASE [Concomitant]
  5. BUSPAR [Concomitant]
  6. LEXAPRO [Concomitant]
  7. ASPIRIN (ACETAMINOPHEN ACID) [Concomitant]

REACTIONS (19)
  - AXILLARY VEIN THROMBOSIS [None]
  - CHILLS [None]
  - CONFUSIONAL STATE [None]
  - DENTAL CARIES [None]
  - LEMIERRE SYNDROME [None]
  - LOCAL SWELLING [None]
  - MENTAL STATUS CHANGES [None]
  - NAUSEA [None]
  - NECK PAIN [None]
  - OEDEMA PERIPHERAL [None]
  - POST PROCEDURAL HAEMATOMA [None]
  - PYREXIA [None]
  - SUBCLAVIAN VEIN THROMBOSIS [None]
  - SUPERIOR VENA CAVAL OCCLUSION [None]
  - SWELLING FACE [None]
  - TELANGIECTASIA [None]
  - VENOUS THROMBOSIS [None]
  - VISION BLURRED [None]
  - VOMITING [None]
